FAERS Safety Report 8455240 (Version 3)
Quarter: 2012Q4

REPORT INFORMATION
  Report Type: 
  Country: US (occurrence: US)
  Receive Date: 20120313
  Receipt Date: 20120904
  Transmission Date: 20130627
  Serious: Yes (Hospitalization, Other)
  Sender: FDA-Public Use
  Company Number: US-BAYER-2012-022059

PATIENT
  Age: 52 Year
  Sex: Female
  Weight: 63.49 kg

DRUGS (5)
  1. YAZ [Suspect]
     Dosage: UNK
     Dates: start: 200708
  2. YASMIN [Suspect]
     Indication: CONTRACEPTION
     Dosage: UNK
     Dates: start: 200708
  3. SUMATRIPTAN [Concomitant]
     Indication: HEADACHE
     Dosage: 100 mg, PRN
     Route: 048
  4. TERBINAFINE [Concomitant]
     Dosage: 250 mg, UNK
     Route: 048
     Dates: start: 20090225
  5. NEXIUM [Concomitant]
     Dosage: 40 mg, UNK
     Route: 048

REACTIONS (6)
  - Cerebral venous thrombosis [None]
  - Transverse sinus thrombosis [Recovering/Resolving]
  - Thrombophlebitis superficial [None]
  - Pain [None]
  - Fear of disease [None]
  - Pain [None]
